FAERS Safety Report 11746410 (Version 3)
Quarter: 2015Q4

REPORT INFORMATION
  Report Type: Report from Study
  Country: NL (occurrence: NL)
  Receive Date: 20151117
  Receipt Date: 20151124
  Transmission Date: 20160304
  Serious: Yes (Death)
  Sender: FDA-Public Use
  Company Number: NL-ROCHE-1661804

PATIENT
  Age: 62 Year
  Sex: Male

DRUGS (1)
  1. ESBRIET [Suspect]
     Active Substance: PIRFENIDONE
     Indication: IDIOPATHIC PULMONARY FIBROSIS
     Dosage: 3X 267 MG TID
     Route: 048
     Dates: start: 201510

REACTIONS (1)
  - Fungal infection [Fatal]

NARRATIVE: CASE EVENT DATE: 20151111
